FAERS Safety Report 24173859 (Version 1)
Quarter: 2024Q3

REPORT INFORMATION
  Report Type: Other
  Country: ES (occurrence: ES)
  Receive Date: 20240805
  Receipt Date: 20240805
  Transmission Date: 20241016
  Serious: Yes (Other)
  Sender: PL DEVELOPMENTS
  Company Number: ES-P+L Developments of Newyork Corporation-2160007

PATIENT
  Age: 03 Year
  Sex: Female

DRUGS (1)
  1. IBUPROFEN [Suspect]
     Active Substance: IBUPROFEN
     Indication: Synovitis
     Route: 065

REACTIONS (1)
  - Drug-induced liver injury [Unknown]
